FAERS Safety Report 15958199 (Version 3)
Quarter: 2019Q2

REPORT INFORMATION
  Report Type: Report from Study
  Country: US (occurrence: US)
  Receive Date: 20190213
  Receipt Date: 20190417
  Transmission Date: 20190711
  Serious: Yes (Other)
  Sender: FDA-Public Use
  Company Number: PHEH2019US006239

PATIENT
  Age: 74 Year
  Sex: Female
  Weight: 75 kg

DRUGS (2)
  1. ASPIRIN. [Concomitant]
     Active Substance: ASPIRIN
     Indication: PRODUCT USED FOR UNKNOWN INDICATION
     Route: 065
  2. COSENTYX [Suspect]
     Active Substance: SECUKINUMAB
     Indication: PSORIASIS
     Dosage: UNK UNK, QW
     Route: 058
     Dates: start: 20190211, end: 20190225

REACTIONS (4)
  - Rectal haemorrhage [Recovering/Resolving]
  - Pruritus [Unknown]
  - Haematochezia [Unknown]
  - Arthritis [Unknown]

NARRATIVE: CASE EVENT DATE: 20190225
